FAERS Safety Report 22248677 (Version 2)
Quarter: 2023Q2

REPORT INFORMATION
  Report Type: Spontaneous
  Country: US (occurrence: US)
  Receive Date: 20230425
  Receipt Date: 20230622
  Transmission Date: 20230722
  Serious: No
  Sender: FDA-Public Use
  Company Number: US-BRISTOL-MYERS SQUIBB COMPANY-2023-058349

PATIENT
  Age: 79 Year
  Sex: Male

DRUGS (1)
  1. SPRYCEL [Suspect]
     Active Substance: DASATINIB
     Indication: Product used for unknown indication
     Dosage: LOT NUMBER: CKZNNA-31-01-2025
     Route: 048
     Dates: start: 202303

REACTIONS (3)
  - Cough [Unknown]
  - Decreased appetite [Unknown]
  - Taste disorder [Unknown]
